FAERS Safety Report 10406642 (Version 1)
Quarter: 2014Q3

REPORT INFORMATION
  Report Type: Spontaneous
  Country: US (occurrence: None)
  Receive Date: 20140822
  Receipt Date: 20140822
  Transmission Date: 20150326
  Serious: No
  Sender: FDA-Public Use
  Company Number: None

PATIENT
  Age: 57 Year
  Sex: Female

DRUGS (1)
  1. HUMIRA [Suspect]
     Active Substance: ADALIMUMAB
     Dosage: 40MG  EVERY 14 DAYS  SC
     Route: 058
     Dates: start: 20080206

REACTIONS (4)
  - Abdominal discomfort [None]
  - Feeling jittery [None]
  - Abdominal pain [None]
  - Nervousness [None]

NARRATIVE: CASE EVENT DATE: 20140820
